FAERS Safety Report 7309167-9 (Version None)
Quarter: 2011Q1

REPORT INFORMATION
  Report Type: 
  Country: None (occurrence: None)
  Receive Date: 20110223
  Receipt Date: 20110211
  Transmission Date: 20110831
  Serious: Yes (Death)
  Sender: FDA-Public Use
  Company Number: AT-ELI_LILLY_AND_COMPANY-AT201102003521

PATIENT
  Age: 56 Year
  Sex: Female

DRUGS (1)
  1. XIGRIS [Suspect]
     Dosage: 24MC/KG/H, UNK
     Route: 042
     Dates: start: 20110210, end: 20110211

REACTIONS (1)
  - SEPTIC SHOCK [None]
